FAERS Safety Report 24579705 (Version 1)
Quarter: 2024Q4

REPORT INFORMATION
  Report Type: Spontaneous
  Country: US (occurrence: US)
  Receive Date: 20241105
  Receipt Date: 20241105
  Transmission Date: 20250114
  Serious: Yes (Hospitalization)
  Sender: MYLAN
  Company Number: US-MYLANLABS-2024M1099329

PATIENT
  Age: 71 Year
  Sex: Male

DRUGS (13)
  1. VANCOMYCIN [Suspect]
     Active Substance: VANCOMYCIN
     Indication: Device related infection
     Dosage: 2 GRAM, ANTIBIOTIC-LOADED BONE CEMENT SPACER
     Route: 014
  2. VANCOMYCIN [Suspect]
     Active Substance: VANCOMYCIN
     Indication: Arthritis infective
     Dosage: 3 GRAM, ANTIBIOTIC-LOADED BONE CEMENT SPACER
     Route: 014
  3. VANCOMYCIN [Suspect]
     Active Substance: VANCOMYCIN
     Dosage: 1 GRAM, STIMULAN BEADS CONTAINING GENTAMICIN AND VANCOMYCIN
     Route: 014
  4. VANCOMYCIN [Suspect]
     Active Substance: VANCOMYCIN
     Indication: Device related infection
     Dosage: 125 MILLIGRAM, BID
     Route: 048
  5. VANCOMYCIN [Suspect]
     Active Substance: VANCOMYCIN
     Indication: Arthritis infective
  6. TOBRAMYCIN [Suspect]
     Active Substance: TOBRAMYCIN\TOBRAMYCIN SULFATE
     Indication: Device related infection
     Dosage: 2.4 GRAM, ANTIBIOTIC-LOADED BONE CEMENT SPACER
     Route: 014
  7. TOBRAMYCIN [Suspect]
     Active Substance: TOBRAMYCIN\TOBRAMYCIN SULFATE
     Indication: Arthritis infective
     Dosage: 3.6 GRAM, ANTIBIOTIC-LOADED BONE CEMENT SPACER
     Route: 014
  8. NAFCILLIN [Suspect]
     Active Substance: NAFCILLIN SODIUM
     Indication: Device related infection
     Dosage: 2 GRAM, Q4H
     Route: 065
  9. NAFCILLIN [Suspect]
     Active Substance: NAFCILLIN SODIUM
     Indication: Arthritis infective
  10. CEFAZOLIN [Suspect]
     Active Substance: CEFAZOLIN
     Indication: Device related infection
     Dosage: 2 GRAM, Q8H
     Route: 042
  11. CEFAZOLIN [Suspect]
     Active Substance: CEFAZOLIN
     Indication: Arthritis infective
     Dosage: 2 GRAM, BID
     Route: 042
  12. GENTAMICIN [Suspect]
     Active Substance: GENTAMICIN
     Indication: Device related infection
     Dosage: 240 MILLIGRAM, STIMULAN BEADS CONTAINING GENTAMICIN AND VANCOMYCIN.
     Route: 014
  13. GENTAMICIN [Suspect]
     Active Substance: GENTAMICIN
     Indication: Arthritis infective

REACTIONS (2)
  - Acute kidney injury [Recovered/Resolved]
  - Drug level increased [Recovering/Resolving]
